FAERS Safety Report 5239028-0 (Version None)
Quarter: 2007Q1

REPORT INFORMATION
  Report Type: 
  Country: None (occurrence: None)
  Receive Date: 20070209
  Receipt Date: 20070202
  Transmission Date: 20070707
  Serious: Yes (Death)
  Sender: FDA-Public Use
  Company Number: MEDI-0005338

PATIENT
  Age: 69 Year
  Sex: Male

DRUGS (7)
  1. ETHYOL [Suspect]
     Indication: DRY MOUTH
     Dosage: 500 MG, 1 IN 1 D, SUBCUTANEOUS
     Route: 058
     Dates: start: 20061113, end: 20061229
  2. ETHYOL [Suspect]
     Indication: NEOPLASM MALIGNANT
     Dosage: 500 MG, 1 IN 1 D, SUBCUTANEOUS
     Route: 058
     Dates: start: 20061113, end: 20061229
  3. ERBITUX [Concomitant]
  4. RADIATION THERAPY [Concomitant]
  5. CALAN [Concomitant]
  6. DYAZIDE [Concomitant]
  7. COUMADIN [Concomitant]

REACTIONS (2)
  - BRAIN HERNIATION [None]
  - CEREBRAL HAEMORRHAGE [None]
